FAERS Safety Report 25938355 (Version 1)
Quarter: 2025Q4

REPORT INFORMATION
  Report Type: Spontaneous
  Country: US (occurrence: US)
  Receive Date: 20251019
  Receipt Date: 20251019
  Transmission Date: 20260118
  Serious: No
  Sender: SANOFI AVENTIS
  Company Number: US-SA-2025SA307700

PATIENT
  Age: 34 Year
  Sex: Male

DRUGS (1)
  1. DUPIXENT [Suspect]
     Active Substance: DUPILUMAB
     Indication: Dermatitis atopic
     Dosage: 300 MG, QOW
     Route: 058

REACTIONS (8)
  - Nausea [Unknown]
  - Pustule [Recovered/Resolved]
  - Dizziness [Unknown]
  - Peripheral swelling [Recovering/Resolving]
  - Eczema [Recovering/Resolving]
  - Skin fissures [Not Recovered/Not Resolved]
  - Erythema [Recovering/Resolving]
  - Dry skin [Recovering/Resolving]
